FAERS Safety Report 5313559-7 (Version None)
Quarter: 2007Q1

REPORT INFORMATION
  Report Type: 
  Country: None (occurrence: None)
  Receive Date: 20070130
  Receipt Date: 20060815
  Transmission Date: 20070707
  Serious: Yes (Other)
  Sender: FDA-Public Use
  Company Number: 146733USA

PATIENT
  Age: 46 Year
  Sex: Female

DRUGS (5)
  1. COPAXONE [Suspect]
     Indication: MULTIPLE SCLEROSIS
     Dosage: (20 MG), SUBCUTANEOUS
     Route: 058
     Dates: start: 20060101, end: 20060717
  2. AMANTADINE HCL [Concomitant]
  3. CELEXA [Concomitant]
  4. LEVOTHYROXINE SODIUM [Concomitant]
  5. ROPINIROLE HCL [Concomitant]

REACTIONS (1)
  - PANCREATITIS [None]
